FAERS Safety Report 14416969 (Version 2)
Quarter: 2018Q1

REPORT INFORMATION
  Report Type: Spontaneous
  Country: US (occurrence: US)
  Receive Date: 20180122
  Receipt Date: 20180125
  Transmission Date: 20180509
  Serious: No
  Sender: FDA-Public Use
  Company Number: US-PFIZER INC-2018026487

PATIENT

DRUGS (1)
  1. VFEND [Suspect]
     Active Substance: VORICONAZOLE

REACTIONS (1)
  - Asthenia [Unknown]
